FAERS Safety Report 6940766-X (Version None)
Quarter: 2010Q3

REPORT INFORMATION
  Report Type: 
  Country: None (occurrence: None)
  Receive Date: 20100824
  Receipt Date: 20100824
  Transmission Date: 20110219
  Serious: Yes (Other)
  Sender: FDA-Public Use
  Company Number: None

PATIENT
  Age: 50 Year
  Sex: Female
  Weight: 79.3795 kg

DRUGS (1)
  1. LIPITOR [Suspect]
     Indication: BLOOD CHOLESTEROL INCREASED
     Dosage: 1/2 PILL -20MG- DAILY, YEAR
     Dates: start: 20090820, end: 20100806

REACTIONS (2)
  - DIARRHOEA [None]
  - RHABDOMYOLYSIS [None]
